FAERS Safety Report 19759123 (Version 1)
Quarter: 2021Q3

REPORT INFORMATION
  Report Type: Spontaneous
  Country: US (occurrence: US)
  Receive Date: 20210829
  Receipt Date: 20210829
  Transmission Date: 20211014
  Serious: No
  Sender: FDA-Public Use
  Company Number: US-SA-2021SA283631

PATIENT
  Age: 78 Year
  Sex: Male

DRUGS (3)
  1. TRAMADOL HCL [Concomitant]
     Active Substance: TRAMADOL HYDROCHLORIDE
     Dosage: 100 % POWDER
  2. TYLENOL [Concomitant]
     Active Substance: ACETAMINOPHEN
     Dosage: 325 MG
  3. DUPIXENT [Suspect]
     Active Substance: DUPILUMAB
     Dosage: 300 MG, QOW
     Route: 058
     Dates: start: 202108

REACTIONS (2)
  - Rash [Unknown]
  - Pruritus [Unknown]

NARRATIVE: CASE EVENT DATE: 20210825
